FAERS Safety Report 5118244-2 (Version None)
Quarter: 2006Q4

REPORT INFORMATION
  Report Type: 
  Country: None (occurrence: None)
  Receive Date: 20061002
  Receipt Date: 20060705
  Transmission Date: 20070319
  Serious: No
  Sender: FDA-Public Use
  Company Number: US-BRISTOL-MYERS SQUIBB COMPANY-13433925

PATIENT
  Sex: Female
  Weight: 84 kg

DRUGS (14)
  1. ORENCIA [Suspect]
     Indication: RHEUMATOID ARTHRITIS
  2. DARVOCET [Concomitant]
     Indication: RHEUMATOID ARTHRITIS
     Dosage: BEGUN 2-3 WEEKS PRIOR TO EVENT REPORTING.  PER CALLER, ^TAKES DARVOCET AFTER LUNCH^.
  3. DARVOCET [Concomitant]
     Indication: PYREXIA
     Dosage: BEGUN 2-3 WEEKS PRIOR TO EVENT REPORTING.  PER CALLER, ^TAKES DARVOCET AFTER LUNCH^.
  4. TYLENOL [Concomitant]
     Indication: PYREXIA
     Dosage: DISCONTINUED 2-3 WEEKS PRIOR TO EVENT REPORTING
  5. COUMADIN [Concomitant]
     Dosage: 5MG DAILY ON WEDNESDAYS, SATURDAYS, AND SUNDAYS; 5MG 1-1/2 TABLETS ON THE REMAINING DAYS
  6. METFORMIN HCL [Concomitant]
  7. EFFEXOR [Concomitant]
  8. VERAPAMIL [Concomitant]
  9. KLOR-CON [Concomitant]
  10. FUROSEMIDE [Concomitant]
  11. DIGITEK [Concomitant]
  12. PREDNISONE [Concomitant]
  13. ADVAIR DISKUS 100/50 [Concomitant]
  14. OXYCODONE HCL [Concomitant]
     Dosage: DISCONTINUED 2-3 WEEKS PRIOR TO EVENT REPORTING

REACTIONS (2)
  - DRUG INEFFECTIVE [None]
  - PYREXIA [None]
